FAERS Safety Report 18337395 (Version 1)
Quarter: 2020Q4

REPORT INFORMATION
  Report Type: Spontaneous
  Country: BR (occurrence: BR)
  Receive Date: 20201002
  Receipt Date: 20201002
  Transmission Date: 20210113
  Serious: Yes (Hospitalization)
  Sender: FDA-Public Use
  Company Number: BR-B.I. PHARMACEUTICALS,INC./RIDGEFIELD-2020-BI-050677

PATIENT
  Sex: Male
  Weight: 97 kg

DRUGS (5)
  1. OMEPRAZOLE. [Concomitant]
     Active Substance: OMEPRAZOLE
     Indication: GASTROINTESTINAL DISORDER PROPHYLAXIS
     Dosage: AT FASTING
     Route: 048
     Dates: start: 2007
  2. OFEV [Suspect]
     Active Substance: NINTEDANIB
     Indication: PULMONARY FIBROSIS
     Route: 048
     Dates: start: 2016
  3. OFEV [Suspect]
     Active Substance: NINTEDANIB
     Route: 048
  4. ZETRON [AZITHROMYCIN] [Concomitant]
     Indication: ANXIETY
     Route: 048
     Dates: start: 201810
  5. QUETIAPINA [QUETIAPINE FUMARATE] [Concomitant]
     Active Substance: QUETIAPINE FUMARATE
     Indication: INSOMNIA
     Dosage: AT 9 P.M.
     Route: 048
     Dates: start: 201810

REACTIONS (2)
  - Influenza [Unknown]
  - Diarrhoea [Not Recovered/Not Resolved]
